FAERS Safety Report 23999253 (Version 1)
Quarter: 2024Q2

REPORT INFORMATION
  Report Type: Spontaneous
  Country: US (occurrence: US)
  Receive Date: 20240621
  Receipt Date: 20240621
  Transmission Date: 20240716
  Serious: No
  Sender: FDA-Public Use
  Company Number: US-HIKMA PHARMACEUTICALS USA INC.-US-H14001-24-00251

PATIENT
  Age: 77 Year
  Sex: Male
  Weight: 90.7 kg

DRUGS (3)
  1. FLUTICASONE PROPIONATE [Suspect]
     Active Substance: FLUTICASONE PROPIONATE
     Dosage: 100 MG, QD AS NEEDED
     Route: 045
     Dates: start: 20231224
  2. FLUTICASONE PROPIONATE [Suspect]
     Active Substance: FLUTICASONE PROPIONATE
     Indication: Seasonal allergy
     Dosage: 100 MG, QD AS NEEDED
     Route: 045
  3. MOISTURE EYES [DEXTRAN] [Concomitant]
     Indication: Product used for unknown indication
     Dosage: UNKNOWN
     Route: 065

REACTIONS (2)
  - Rhinorrhoea [Unknown]
  - Nasal pruritus [Unknown]
